FAERS Safety Report 10270629 (Version 1)
Quarter: 2014Q3

REPORT INFORMATION
  Report Type: Spontaneous
  Country: US (occurrence: US)
  Receive Date: 20140701
  Receipt Date: 20140701
  Transmission Date: 20150326
  Serious: Yes (Other)
  Sender: FDA-Public Use
  Company Number: US-OTSUKA-US-2014-11636

PATIENT
  Age: 54 Year
  Sex: Male
  Weight: 94.33 kg

DRUGS (9)
  1. FLOMAX [Suspect]
     Active Substance: TAMSULOSIN HYDROCHLORIDE
     Indication: PRODUCT USED FOR UNKNOWN INDICATION
     Dosage: UNK
     Route: 065
  2. PENTASA [Concomitant]
     Active Substance: MESALAMINE
     Indication: PRODUCT USED FOR UNKNOWN INDICATION
     Dosage: UNK
     Route: 065
  3. AZOR                               /00595201/ [Concomitant]
     Indication: PRODUCT USED FOR UNKNOWN INDICATION
     Dosage: UNK
     Route: 065
  4. HUMIRA [Suspect]
     Active Substance: ADALIMUMAB
     Dosage: 2.8571 MG (40 MG, 1 IN 2 WK)
  5. ASPIRIN. [Concomitant]
     Active Substance: ASPIRIN
     Indication: PRODUCT USED FOR UNKNOWN INDICATION
     Dosage: 325 MG MILLIGRAM(S), UNKNOWN
     Route: 065
  6. PLETAL [Suspect]
     Active Substance: CILOSTAZOL
     Indication: PRODUCT USED FOR UNKNOWN INDICATION
     Route: 065
  7. HUMIRA [Suspect]
     Active Substance: ADALIMUMAB
     Indication: CROHN^S DISEASE
     Dosage: LOADING DOSE, 160 MG MILLIGRAM(S), ONCE
     Route: 065
     Dates: start: 201404, end: 201404
  8. ENTOCORT [Concomitant]
     Active Substance: BUDESONIDE
     Indication: PRODUCT USED FOR UNKNOWN INDICATION
     Dosage: UNK
     Route: 065
  9. HUMIRA [Suspect]
     Active Substance: ADALIMUMAB
     Dosage: LOADING DOSE, 80 MG MILLIGRAM(S), TWICE, 1 IN 2 WK
     Route: 065

REACTIONS (11)
  - Inflammation [Unknown]
  - Neck pain [Unknown]
  - Hypotension [Recovered/Resolved]
  - Intestinal fistula [Unknown]
  - Intervertebral disc compression [Unknown]
  - Loss of consciousness [Recovered/Resolved]
  - Dizziness [Unknown]
  - Headache [Unknown]
  - Peripheral vascular disorder [Unknown]
  - Hypersensitivity [Recovered/Resolved]
  - Concussion [Recovered/Resolved]

NARRATIVE: CASE EVENT DATE: 2013
